FAERS Safety Report 18431990 (Version 7)
Quarter: 2021Q1

REPORT INFORMATION
  Report Type: Spontaneous
  Country: TW (occurrence: TW)
  Receive Date: 20201027
  Receipt Date: 20210308
  Transmission Date: 20210419
  Serious: Yes (Hospitalization, Other)
  Sender: FDA-Public Use
  Company Number: TW-JNJFOC-20201031661

PATIENT
  Age: 68 Year
  Sex: Male

DRUGS (8)
  1. XARELTO [Suspect]
     Active Substance: RIVAROXABAN
     Indication: ANTICOAGULANT THERAPY
     Dosage: 10 MG, QD
     Route: 048
     Dates: end: 202010
  2. ROSIS [Concomitant]
     Active Substance: FUROSEMIDE
     Indication: DIURETIC THERAPY
     Dosage: 1 DF, BID
     Route: 048
  3. ADEMPAS [Suspect]
     Active Substance: RIOCIGUAT
     Indication: PULMONARY HYPERTENSION
     Dosage: 2 MG, TID
     Route: 048
     Dates: start: 20180108
  4. CONCOR [Concomitant]
     Active Substance: BISOPROLOL FUMARATE
     Indication: CARDIAC FAILURE CHRONIC
     Dosage: 1 DF, QD
     Route: 048
  5. DIGOSIN [Concomitant]
     Active Substance: DIGOXIN
     Indication: CARDIAC FAILURE CHRONIC
     Dosage: 0.5 DF, QD
     Route: 048
  6. SPIRONOLACTONE. [Concomitant]
     Active Substance: SPIRONOLACTONE
     Indication: DIURETIC THERAPY
     Dosage: 25 MG, QD
     Route: 048
  7. ATOZET [Concomitant]
     Active Substance: ATORVASTATIN CALCIUM\EZETIMIBE
     Indication: LIPIDS INCREASED
     Dosage: 1 DF, QD
     Route: 048
  8. RADI K [Concomitant]
     Indication: HYPOKALAEMIA
     Dosage: 1 DF, BID
     Route: 048

REACTIONS (10)
  - Gastric haemorrhage [Recovered/Resolved]
  - Arrhythmia [Unknown]
  - Peripheral swelling [Not Recovered/Not Resolved]
  - Pain in extremity [Not Recovered/Not Resolved]
  - Haemorrhage subcutaneous [Not Recovered/Not Resolved]
  - Cellulitis [Recovered/Resolved]
  - Osteoarthritis [Unknown]
  - Arthralgia [Unknown]
  - Deep vein thrombosis [Unknown]
  - Joint dislocation [Not Recovered/Not Resolved]

NARRATIVE: CASE EVENT DATE: 201905
